FAERS Safety Report 17049263 (Version 1)
Quarter: 2019Q4

REPORT INFORMATION
  Report Type: Report from Study
  Country: CA (occurrence: CA)
  Receive Date: 20191119
  Receipt Date: 20191119
  Transmission Date: 20200122
  Serious: Yes (Other)
  Sender: FDA-Public Use
  Company Number: PHHY2015CA114642

PATIENT
  Age: 33 Year
  Sex: Female

DRUGS (1)
  1. GILENYA [Suspect]
     Active Substance: FINGOLIMOD HYDROCHLORIDE
     Indication: PRODUCT USED FOR UNKNOWN INDICATION
     Dosage: UNK
     Route: 048
     Dates: start: 20150805

REACTIONS (4)
  - Expanded disability status scale score increased [Unknown]
  - Arthralgia [Unknown]
  - Pain in extremity [Unknown]
  - Movement disorder [Unknown]

NARRATIVE: CASE EVENT DATE: 20150917
